FAERS Safety Report 18691339 (Version 2)
Quarter: 2021Q1

REPORT INFORMATION
  Report Type: Report from Study
  Country: CA (occurrence: CA)
  Receive Date: 20210101
  Receipt Date: 20210216
  Transmission Date: 20210419
  Serious: Yes (Hospitalization)
  Sender: FDA-Public Use
  Company Number: CA-UCBSA-2020053601

PATIENT
  Sex: Female

DRUGS (19)
  1. BISOPROLOL [Concomitant]
     Active Substance: BISOPROLOL
  2. VITAMIN B [Concomitant]
     Active Substance: VITAMIN B
  3. ASPIRIN [ACETYLSALICYLIC ACID] [Concomitant]
     Active Substance: ASPIRIN
  4. JANUVIA [Concomitant]
     Active Substance: SITAGLIPTIN PHOSPHATE
  5. METFORMIN [Concomitant]
     Active Substance: METFORMIN HYDROCHLORIDE
  6. CERTOLIZUMAB PEGOL [Suspect]
     Active Substance: CERTOLIZUMAB PEGOL
     Indication: RHEUMATOID ARTHRITIS
     Dosage: 400 MILLIGRAM, EV 4 WEEKS
     Route: 058
     Dates: start: 20111026
  7. IRBESARTAN. [Concomitant]
     Active Substance: IRBESARTAN
  8. AMLODIPINE [Concomitant]
     Active Substance: AMLODIPINE BESYLATE
  9. GLICLAZIDE [Concomitant]
     Active Substance: GLICLAZIDE
  10. OMEGA?3 FATTY ACIDS [Concomitant]
     Active Substance: OMEGA-3 FATTY ACIDS
  11. CALTRATE WITH VITAMIN D [Concomitant]
     Active Substance: CALCIUM CARBONATE\CHOLECALCIFEROL
  12. CENTRUM [MINERALS NOS;VITAMINS NOS] [Concomitant]
     Active Substance: MINERALS\VITAMINS
  13. PROLIA [Concomitant]
     Active Substance: DENOSUMAB
  14. VITAMIN D [COLECALCIFEROL] [Concomitant]
     Active Substance: CHOLECALCIFEROL
  15. TECTA [Concomitant]
     Active Substance: PANTOPRAZOLE MAGNESIUM
  16. ROSUVASTATIN CALCIUM. [Concomitant]
     Active Substance: ROSUVASTATIN CALCIUM
  17. EURO?FER [Concomitant]
  18. TYLENOL [Concomitant]
     Active Substance: ACETAMINOPHEN
  19. HUMIRA [Concomitant]
     Active Substance: ADALIMUMAB

REACTIONS (5)
  - Chest pain [Unknown]
  - Hepatic enzyme increased [Unknown]
  - Breast pain [Unknown]
  - Back pain [Unknown]
  - Gastrooesophageal reflux disease [Unknown]
